FAERS Safety Report 4634099-4 (Version None)
Quarter: 2005Q2

REPORT INFORMATION
  Report Type: 
  Country: None (occurrence: None)
  Receive Date: 20050413
  Receipt Date: 20050404
  Transmission Date: 20051028
  Serious: Yes (Hospitalization)
  Sender: FDA-Public Use
  Company Number: FRPFM-E-20050037

PATIENT
  Age: 47 Year
  Sex: Female

DRUGS (6)
  1. NAVELBINE [Suspect]
     Route: 042
     Dates: start: 20041227, end: 20041227
  2. CISPLATIN [Suspect]
     Indication: DRUG USE FOR UNKNOWN INDICATION
     Route: 042
     Dates: start: 20041227, end: 20041227
  3. LARGACTIL [Concomitant]
     Dates: start: 20041227, end: 20041227
  4. SOLU-MEDROL [Concomitant]
     Dates: start: 20041227, end: 20041230
  5. SOLU-MEDROL [Concomitant]
     Dates: start: 20041227, end: 20041230
  6. TRANXENE [Concomitant]
     Dosage: 20MG PER DAY
     Route: 048
     Dates: start: 20041227, end: 20050102

REACTIONS (4)
  - HYPOKALAEMIA [None]
  - NAUSEA [None]
  - RENAL FAILURE [None]
  - VOMITING [None]
